FAERS Safety Report 14141399 (Version 1)
Quarter: 2017Q4

REPORT INFORMATION
  Report Type: Spontaneous
  Country: GB (occurrence: GB)
  Receive Date: 20171030
  Receipt Date: 20171030
  Transmission Date: 20180321
  Serious: Yes (Other)
  Sender: FDA-Public Use
  Company Number: GB-TEVA-818850ACC

PATIENT
  Age: 56 Year
  Sex: Male
  Weight: 88 kg

DRUGS (9)
  1. VISCOTEARS [Concomitant]
     Active Substance: CARBOMER
     Dosage: THREE TO FOUR TIMES DAILY.
     Dates: start: 20170110
  2. PARACETAMOL [Concomitant]
     Active Substance: ACETAMINOPHEN
     Dosage: 1 OR 2 THREE TIMES A DAY
     Dates: start: 20170905, end: 20170919
  3. AMLODIPINE [Concomitant]
     Active Substance: AMLODIPINE BESYLATE
     Dosage: 1 DOSAGE FORMS DAILY;
     Dates: start: 20170110
  4. ERYTHROMYCIN ETHYLSUCCINATE. [Suspect]
     Active Substance: ERYTHROMYCIN ETHYLSUCCINATE
     Dates: start: 20171004
  5. METRONIDAZOLE. [Concomitant]
     Active Substance: METRONIDAZOLE
     Dosage: 3 DOSAGE FORMS DAILY;
     Dates: start: 20171006
  6. AMITRIPTYLINE HYDROCHLORIDE. [Concomitant]
     Active Substance: AMITRIPTYLINE HYDROCHLORIDE
     Dosage: 1 DOSAGE FORMS DAILY;
     Dates: start: 20170116, end: 20170905
  7. LANSOPRAZOLE. [Concomitant]
     Active Substance: LANSOPRAZOLE
     Dosage: 1 DOSAGE FORMS DAILY;
     Dates: start: 20170110, end: 20170905
  8. RAMIPRIL. [Concomitant]
     Active Substance: RAMIPRIL
     Dosage: 1 DOSAGE FORMS DAILY;
     Dates: start: 20170110
  9. SUMATRIPTAN. [Concomitant]
     Active Substance: SUMATRIPTAN
     Dosage: AS DIRECTED
     Dates: start: 20170110, end: 20170905

REACTIONS (4)
  - Pharyngeal inflammation [Recovered/Resolved]
  - Stomatitis [Recovered/Resolved]
  - Palatal swelling [Recovered/Resolved]
  - Enlarged uvula [Recovered/Resolved]

NARRATIVE: CASE EVENT DATE: 20171005
